FAERS Safety Report 16425168 (Version 6)
Quarter: 2020Q2

REPORT INFORMATION
  Report Type: Report from Study
  Country: JP (occurrence: JP)
  Receive Date: 20190613
  Receipt Date: 20200619
  Transmission Date: 20200713
  Serious: Yes (Other)
  Sender: FDA-Public Use
  Company Number: JP-GILEAD-2019-0412523

PATIENT
  Age: 77 Year
  Sex: Male

DRUGS (19)
  1. ADEFOVIR DIPIVOXIL. [Suspect]
     Active Substance: ADEFOVIR DIPIVOXIL
     Indication: HEPATITIS B
     Dosage: UNK
     Route: 065
     Dates: start: 20101006, end: 20150305
  2. LANIRAPID [Concomitant]
     Active Substance: METILDIGOXIN
     Indication: DISEASE COMPLICATION
     Route: 048
     Dates: end: 20190129
  3. ALLEGRA [Concomitant]
     Active Substance: FEXOFENADINE HYDROCHLORIDE
     Indication: DISEASE COMPLICATION
     Route: 048
     Dates: end: 20181227
  4. TRESIBA [Concomitant]
     Active Substance: INSULIN DEGLUDEC
     Indication: DISEASE COMPLICATION
     Route: 042
  5. VIREAD [Suspect]
     Active Substance: TENOFOVIR DISOPROXIL FUMARATE
     Indication: HEPATITIS B
     Dosage: UNK
     Route: 065
     Dates: start: 20150306, end: 20180424
  6. FERROMIA [Concomitant]
     Active Substance: SODIUM FERROUS CITRATE
     Indication: DISEASE COMPLICATION
     Route: 048
     Dates: end: 20181211
  7. PIOGLITAZONE. [Concomitant]
     Active Substance: PIOGLITAZONE
     Indication: DISEASE COMPLICATION
     Route: 048
     Dates: end: 20181218
  8. EQUMET [Concomitant]
     Active Substance: METFORMIN HYDROCHLORIDE\VILDAGLIPTIN
     Indication: DISEASE COMPLICATION
     Route: 048
     Dates: end: 20181211
  9. METFORMIN HYDROCHLORIDE. [Concomitant]
     Active Substance: METFORMIN HYDROCHLORIDE
     Indication: DISEASE COMPLICATION
     Dosage: UNK
     Route: 048
     Dates: start: 20110825
  10. HUMALOG [Concomitant]
     Active Substance: INSULIN LISPRO
     Indication: DISEASE COMPLICATION
     Route: 042
     Dates: end: 20181218
  11. DICLOFENAC SODIUM. [Concomitant]
     Active Substance: DICLOFENAC SODIUM
     Indication: DISEASE COMPLICATION
     Dosage: UNK
     Route: 054
     Dates: end: 20180706
  12. ATORVASTATIN [Concomitant]
     Active Substance: ATORVASTATIN
     Indication: HYPERCHOLESTEROLAEMIA
     Route: 048
  13. TENOFOVIR ALAFENAMIDE [Suspect]
     Active Substance: TENOFOVIR ALAFENAMIDE
     Indication: HEPATITIS B
     Dosage: 25 MG, QD
     Route: 048
     Dates: start: 20180425, end: 20190610
  14. FOLIAMIN [Concomitant]
     Active Substance: FOLIC ACID
     Indication: DISEASE COMPLICATION
     Route: 048
  15. METOLATE [Concomitant]
     Active Substance: METHOTREXATE
     Indication: DISEASE COMPLICATION
     Route: 048
  16. SODIUM RABEPRAZOLE [Concomitant]
     Active Substance: RABEPRAZOLE SODIUM
     Indication: DISEASE COMPLICATION
     Route: 048
  17. DIGOSIN [Concomitant]
     Active Substance: DIGOXIN
     Indication: DISEASE COMPLICATION
     Route: 048
  18. ENTECAVIR. [Concomitant]
     Active Substance: ENTECAVIR
     Indication: HEPATITIS B
     Dosage: UNK
     Route: 065
     Dates: start: 20170125, end: 20180424
  19. LAMIVUDINE. [Concomitant]
     Active Substance: LAMIVUDINE
     Indication: HEPATITIS B
     Dosage: UNK
     Route: 065
     Dates: start: 20101006, end: 20170124

REACTIONS (4)
  - Type 2 diabetes mellitus [Not Recovered/Not Resolved]
  - Myelopathy [Recovering/Resolving]
  - Drug ineffective [Unknown]
  - Drug ineffective [Unknown]

NARRATIVE: CASE EVENT DATE: 2015
